FAERS Safety Report 23492527 (Version 1)
Quarter: 2024Q1

REPORT INFORMATION
  Report Type: Report from Study
  Country: US (occurrence: US)
  Receive Date: 20240207
  Receipt Date: 20240207
  Transmission Date: 20240410
  Serious: No
  Sender: FDA-Public Use
  Company Number: US-ORG100014127-2023000769

PATIENT
  Age: 75 Year
  Sex: Male

DRUGS (10)
  1. LYSODREN [Suspect]
     Active Substance: MITOTANE
     Indication: Adrenal gland cancer
     Dosage: 2 TABLETS BY MOUTH TWICE DAILY
     Dates: start: 20220408
  2. LYSODREN [Suspect]
     Active Substance: MITOTANE
     Indication: Adrenal gland cancer
     Dosage: TAKE 1 TABLET BY MOUTH TWICE DAILY.
  3. LYSODREN [Suspect]
     Active Substance: MITOTANE
     Indication: Adrenal gland cancer
     Dosage: MAXIMUM 6 G PER DAY
  4. LYSODREN [Suspect]
     Active Substance: MITOTANE
     Indication: Adrenal gland cancer
     Dosage: TAKE 4 TABLETS (2000 MG) BY MOUTH TWICE DAILY
  5. LYSODREN [Suspect]
     Active Substance: MITOTANE
     Indication: Adrenal gland cancer
     Dosage: 4 TABLETS (2,000 MG) IN THE MORNING AND 03 TABLETS (1,500 MG) IN THE EVENING.
     Dates: end: 20220608
  6. LYSODREN [Suspect]
     Active Substance: MITOTANE
     Indication: Adrenal gland cancer
     Dates: start: 20230611
  7. Aspirin tablet 1 mg EC [Concomitant]
     Indication: Product used for unknown indication
  8. Atorvastatin TAB 20MG [Concomitant]
     Indication: Product used for unknown indication
  9. Colace cap 100 mg [Concomitant]
     Indication: Product used for unknown indication
  10. Metoprolol Tablet 25 mg [Concomitant]
     Indication: Product used for unknown indication

REACTIONS (2)
  - Dyspnoea [Not Recovered/Not Resolved]
  - Fatigue [Not Recovered/Not Resolved]

NARRATIVE: CASE EVENT DATE: 20230614
